FAERS Safety Report 4382816-3 (Version None)
Quarter: 2004Q2

REPORT INFORMATION
  Report Type: 
  Country: None (occurrence: None)
  Receive Date: 20040602
  Receipt Date: 20031001
  Transmission Date: 20050107
  Serious: Yes (Hospitalization)
  Sender: FDA-Public Use
  Company Number: NSADSS2002020110

PATIENT
  Age: 54 Year
  Sex: Female
  Weight: 99.7913 kg

DRUGS (7)
  1. PROPULSID [Suspect]
     Indication: BURN OF INTERNAL ORGANS
     Dosage: 20 MG, 3 IN 1 DAY, ORAL
     Route: 048
     Dates: start: 19960501
  2. SEREVENT [Concomitant]
  3. INTAL [Concomitant]
  4. PROVENTIL [Concomitant]
  5. ACCOLATE [Concomitant]
  6. FLOVENT [Concomitant]
  7. PREDNISONE TAB [Concomitant]

REACTIONS (4)
  - ABDOMINAL PAIN [None]
  - ASTHMA [None]
  - DEPRESSION [None]
  - RESPIRATORY DISORDER [None]
